FAERS Safety Report 7876740-9 (Version None)
Quarter: 2011Q4

REPORT INFORMATION
  Report Type: 
  Country: None (occurrence: None)
  Receive Date: 20111031
  Receipt Date: 20111028
  Transmission Date: 20120403
  Serious: Yes (Life-Threatening)
  Sender: FDA-Public Use
  Company Number: CN-ASTRAZENECA-2011SE63380

PATIENT
  Age: 25 Year
  Sex: Female

DRUGS (3)
  1. SCOPOLAMINE [Concomitant]
     Dosage: 0.3 MG
     Dates: start: 20090319
  2. LIDOCAINE [Suspect]
     Indication: LOCAL ANAESTHESIA
     Route: 053
     Dates: start: 20090319, end: 20090319
  3. PHENOBARBITAL TAB [Concomitant]
     Dosage: 0.1 GR
     Dates: start: 20090319

REACTIONS (1)
  - ANAPHYLACTIC SHOCK [None]
